FAERS Safety Report 25502938 (Version 1)
Quarter: 2025Q3

REPORT INFORMATION
  Report Type: Spontaneous
  Country: JP (occurrence: JP)
  Receive Date: 20250702
  Receipt Date: 20250702
  Transmission Date: 20251021
  Serious: Yes (Life-Threatening, Hospitalization, Other)
  Sender: Norvium Bioscience
  Company Number: JP-Norvium Bioscience LLC-080337

PATIENT
  Age: 82 Year
  Sex: Male

DRUGS (2)
  1. BACLOFEN [Suspect]
     Active Substance: BACLOFEN
     Indication: Hiccups
  2. CHLORPROMAZINE [Concomitant]
     Active Substance: CHLORPROMAZINE
     Indication: Hiccups

REACTIONS (3)
  - Toxicity to various agents [Recovered/Resolved]
  - Altered state of consciousness [Recovered/Resolved]
  - Dyskinesia [Recovered/Resolved]
